FAERS Safety Report 20755687 (Version 3)
Quarter: 2022Q4

REPORT INFORMATION
  Report Type: Spontaneous
  Country: US (occurrence: US)
  Receive Date: 20220427
  Receipt Date: 20221013
  Transmission Date: 20230112
  Serious: No
  Sender: FDA-Public Use
  Company Number: US-PFIZER INC-202200513153

PATIENT
  Age: 30 Year
  Sex: Male

DRUGS (1)
  1. SOMAVERT [Suspect]
     Active Substance: PEGVISOMANT
     Dosage: 10 MG, SINGLE (10 MG W/PFS DILUENT (SINGLE))
     Dates: start: 20220201

REACTIONS (2)
  - Product dose omission issue [Unknown]
  - Sleep deficit [Unknown]

NARRATIVE: CASE EVENT DATE: 20220101
